FAERS Safety Report 9297101 (Version 2)
Quarter: 2013Q2

REPORT INFORMATION
  Report Type: Report from Study
  Country: BR (occurrence: BR)
  Receive Date: 20130518
  Receipt Date: 20130616
  Transmission Date: 20140414
  Serious: Yes (Other)
  Sender: FDA-Public Use
  Company Number: BR-US-EMD SERONO, INC.-7210260

PATIENT
  Age: 41 Year
  Sex: Male

DRUGS (1)
  1. REBIF [Suspect]
     Indication: RELAPSING-REMITTING MULTIPLE SCLEROSIS
     Dates: start: 20080512

REACTIONS (2)
  - Dengue fever [Recovered/Resolved]
  - Influenza like illness [Recovered/Resolved]
